FAERS Safety Report 13845620 (Version 1)
Quarter: 2017Q3

REPORT INFORMATION
  Report Type: Spontaneous
  Country: US (occurrence: US)
  Receive Date: 20170808
  Receipt Date: 20170808
  Transmission Date: 20171127
  Serious: No
  Sender: FDA-Public Use
  Company Number: US-ROCHE-799995

PATIENT
  Sex: Female
  Weight: 63.5 kg

DRUGS (1)
  1. BONIVA [Suspect]
     Active Substance: IBANDRONATE SODIUM
     Indication: PRODUCT USED FOR UNKNOWN INDICATION
     Dosage: A YEAR OR TWO AGO
     Route: 048

REACTIONS (3)
  - Nausea [Unknown]
  - Drug administration error [Unknown]
  - Pain [Unknown]
